FAERS Safety Report 5480258-0 (Version None)
Quarter: 2007Q4

REPORT INFORMATION
  Report Type: 
  Country: None (occurrence: None)
  Receive Date: 20071009
  Receipt Date: 20070928
  Transmission Date: 20080405
  Serious: Yes (Other)
  Sender: FDA-Public Use
  Company Number: US-BAYER-200712781BWH

PATIENT
  Age: 92 Year
  Sex: Female

DRUGS (10)
  1. AVELOX [Suspect]
     Indication: BRONCHITIS
     Dosage: TOTAL DAILY DOSE: 400 MG  UNIT DOSE: 400 MG
     Route: 048
     Dates: start: 20070731, end: 20070805
  2. FUROSEMIDE [Concomitant]
  3. LORTAB [Concomitant]
  4. COREG [Concomitant]
  5. FERROUS SULFATE TAB [Concomitant]
  6. SERTRALINE HCL [Concomitant]
  7. ASPIRIN [Concomitant]
  8. NORVASC [Concomitant]
  9. ACETAMINOPHEN [Concomitant]
  10. CLARITHROMYCIN [Concomitant]
     Route: 048
     Dates: start: 20070723

REACTIONS (2)
  - AZOTAEMIA [None]
  - HALLUCINATION [None]
